FAERS Safety Report 11111674 (Version 23)
Quarter: 2019Q4

REPORT INFORMATION
  Report Type: Report from Study
  Country: CA (occurrence: CA)
  Receive Date: 20150514
  Receipt Date: 20191106
  Transmission Date: 20200122
  Serious: Yes (Hospitalization, Other)
  Sender: FDA-Public Use
  Company Number: CA-ROCHE-1298701

PATIENT
  Age: 61 Year
  Sex: Female
  Weight: 72.6 kg

DRUGS (14)
  1. ACETAMINOPHEN. [Concomitant]
     Active Substance: ACETAMINOPHEN
     Indication: PREMEDICATION
     Route: 048
     Dates: start: 20110613
  2. METHYLPREDNISOLONE. [Concomitant]
     Active Substance: METHYLPREDNISOLONE
     Indication: PREMEDICATION
     Route: 042
     Dates: start: 20110613
  3. PANTOLOC [PANTOPRAZOLE] [Concomitant]
     Active Substance: PANTOPRAZOLE SODIUM
  4. DIPHENHYDRAMINE HCL [Concomitant]
     Active Substance: DIPHENHYDRAMINE HYDROCHLORIDE
     Indication: PREMEDICATION
     Route: 048
     Dates: start: 20110613
  5. METOPROLOL. [Concomitant]
     Active Substance: METOPROLOL
     Route: 048
  6. PLAQUENIL [Concomitant]
     Active Substance: HYDROXYCHLOROQUINE SULFATE
     Route: 048
  7. SOLU-MEDROL [Concomitant]
     Active Substance: METHYLPREDNISOLONE SODIUM SUCCINATE
     Indication: PREMEDICATION
     Route: 042
     Dates: start: 20110613
  8. CELEBREX [Concomitant]
     Active Substance: CELECOXIB
  9. SYNTHROID [Concomitant]
     Active Substance: LEVOTHYROXINE SODIUM
  10. RITUXAN [Suspect]
     Active Substance: RITUXIMAB
     Indication: RHEUMATOID ARTHRITIS
     Dosage: DATE OF PREVIOUS RITUXIMAB INFUSION: 08/OCT/2014, DATE OF PREVIOUS RITUXAN INFUSION: 28-JUL-2017
     Route: 042
     Dates: start: 20110613
  11. ACTONEL [Concomitant]
     Active Substance: RISEDRONATE SODIUM
  12. METHOTREXATE. [Suspect]
     Active Substance: METHOTREXATE
     Indication: PRODUCT USED FOR UNKNOWN INDICATION
     Route: 065
  13. VENTOLIN [Concomitant]
     Active Substance: ALBUTEROL SULFATE
     Route: 065
  14. CITALOPRAM [Concomitant]
     Active Substance: CITALOPRAM HYDROBROMIDE
     Route: 065

REACTIONS (37)
  - Pneumonia [Recovered/Resolved]
  - Rash [Recovered/Resolved]
  - Hypertension [Unknown]
  - Wrist fracture [Not Recovered/Not Resolved]
  - Rheumatoid arthritis [Unknown]
  - Eczema [Unknown]
  - Rhinorrhoea [Unknown]
  - Skin fissures [Recovering/Resolving]
  - Joint dislocation [Unknown]
  - Arthralgia [Unknown]
  - Bone loss [Unknown]
  - Dyspnoea [Not Recovered/Not Resolved]
  - Blood pressure increased [Unknown]
  - Stomatitis [Recovered/Resolved]
  - Osteoarthritis [Unknown]
  - Blood pressure systolic increased [Unknown]
  - Decreased appetite [Unknown]
  - Abdominal pain [Unknown]
  - Dry skin [Recovering/Resolving]
  - Bone density decreased [Unknown]
  - Oxygen saturation decreased [Unknown]
  - Nasopharyngitis [Unknown]
  - Cough [Not Recovered/Not Resolved]
  - Scar [Unknown]
  - Skin laceration [Not Recovered/Not Resolved]
  - Cystitis [Recovered/Resolved]
  - Drug hypersensitivity [Unknown]
  - Pyrexia [Recovered/Resolved]
  - Gait disturbance [Not Recovered/Not Resolved]
  - Fall [Unknown]
  - Malaise [Unknown]
  - Chest pain [Recovered/Resolved]
  - Respiratory rate increased [Unknown]
  - Abdominal pain upper [Unknown]
  - Vaginal infection [Recovered/Resolved]
  - Pain [Unknown]
  - Blood pressure systolic abnormal [Unknown]

NARRATIVE: CASE EVENT DATE: 201504
